FAERS Safety Report 8332808-4 (Version None)
Quarter: 2012Q1

REPORT INFORMATION
  Report Type: 
  Country: None (occurrence: None)
  Receive Date: 20120327
  Receipt Date: 20100820
  Transmission Date: 20120608
  Serious: Yes (Other)
  Sender: FDA-Public Use
  Company Number: PHEH2010US02111

PATIENT
  Age: 76 Year
  Sex: Male

DRUGS (10)
  1. GLEEVEC [Suspect]
     Indication: CHRONIC MYELOID LEUKAEMIA
     Dosage: 400 MG, QD, ORAL
     Route: 048
     Dates: start: 20091116
  2. MULTI-VITAMINS [Concomitant]
  3. DIOVAN ^BIBA-GEIGY^ (VALSARTAN) [Concomitant]
  4. ZYRTEC [Concomitant]
  5. VITAMIN B12 [Concomitant]
  6. ASPIRIN [Concomitant]
  7. METFORMIN HCL [Suspect]
     Indication: DIABETES MELLITUS
     Dosage: 80 QD, ORAL
     Route: 048
     Dates: start: 20091116
  8. PROCHLORPERAZINE [Concomitant]
  9. ALLOPURINOL [Concomitant]
  10. METOPROLOL TARTRATE [Concomitant]

REACTIONS (5)
  - SWELLING [None]
  - RASH [None]
  - PERIORBITAL OEDEMA [None]
  - MUSCLE SPASMS [None]
  - DRY MOUTH [None]
